FAERS Safety Report 6908525-1 (Version None)
Quarter: 2010Q3

REPORT INFORMATION
  Report Type: 
  Country: None (occurrence: None)
  Receive Date: 20100805
  Receipt Date: 20100721
  Transmission Date: 20110219
  Serious: No
  Sender: FDA-Public Use
  Company Number: US-ELI_LILLY_AND_COMPANY-US201007005720

PATIENT
  Sex: Female

DRUGS (8)
  1. CYMBALTA [Suspect]
     Indication: DEPRESSION
     Dosage: 30 MG, DAILY (1/D)
  2. PROZAC [Suspect]
  3. SYNTHROID [Concomitant]
  4. SYMBICORT [Concomitant]
  5. SINGULAIR [Concomitant]
  6. FLOVENT [Concomitant]
  7. DICYCLOMINE [Concomitant]
  8. OMEPRAZOLE [Concomitant]

REACTIONS (1)
  - LIVER FUNCTION TEST ABNORMAL [None]
